FAERS Safety Report 4771439-X (Version None)
Quarter: 2005Q3

REPORT INFORMATION
  Report Type: 
  Country: None (occurrence: None)
  Receive Date: 20050914
  Receipt Date: 20050829
  Transmission Date: 20060218
  Serious: Yes (Death, Life-Threatening, Other)
  Sender: FDA-Public Use
  Company Number: USA0508106708

PATIENT
  Age: 24 Year
  Sex: Male

DRUGS (3)
  1. ZYPREXA [Suspect]
     Indication: ABNORMAL BEHAVIOUR
     Dosage: 30 MG DAY
  2. TRILEPTAL [Concomitant]
  3. PROPRANOLOL [Concomitant]

REACTIONS (2)
  - CARDIO-RESPIRATORY ARREST [None]
  - GRAND MAL CONVULSION [None]
